FAERS Safety Report 8892710 (Version 1)
Quarter: 2012Q4

REPORT INFORMATION
  Report Type: 
  Country: US (occurrence: US)
  Receive Date: 20121107
  Receipt Date: 20121107
  Transmission Date: 20130627
  Serious: No
  Sender: FDA-Public Use
  Company Number: US-AMGEN-USASP2011054517

PATIENT
  Sex: Female

DRUGS (4)
  1. ENBREL [Suspect]
     Dosage: 50 mg, qwk
     Route: 058
  2. FOLIC ACID [Concomitant]
     Dosage: 20 mg, UNK
  3. B6 [Concomitant]
     Dosage: 250 mg, UNK
  4. ISONIAZID [Concomitant]
     Dosage: 100 mg, UNK

REACTIONS (2)
  - Hepatic enzyme increased [Unknown]
  - Mycobacterium tuberculosis complex test positive [Unknown]
